FAERS Safety Report 8614415-9 (Version None)
Quarter: 2012Q3

REPORT INFORMATION
  Report Type: 
  Country: None (occurrence: None)
  Receive Date: 20120823
  Receipt Date: 20120817
  Transmission Date: 20120928
  Serious: Yes (Other)
  Sender: FDA-Public Use
  Company Number: DE-PFIZER INC-2012203378

PATIENT
  Age: 46 Year
  Sex: Male

DRUGS (2)
  1. IBUPROFEN [Suspect]
     Indication: MIGRAINE
     Dosage: TWICE A WEEK
  2. PELARGONIUM SIDOIDES [Concomitant]
     Indication: VIRAL INFECTION
     Dosage: UNK
     Dates: start: 20051201

REACTIONS (1)
  - LIVER INJURY [None]
